FAERS Safety Report 21639300 (Version 2)
Quarter: 2022Q4

REPORT INFORMATION
  Report Type: Spontaneous
  Country: BR (occurrence: BR)
  Receive Date: 20221124
  Receipt Date: 20221220
  Transmission Date: 20230113
  Serious: No
  Sender: FDA-Public Use
  Company Number: BR-002147023-NVSC2022BR264228

PATIENT
  Age: 86 Year
  Sex: Female
  Weight: 69 kg

DRUGS (9)
  1. AZOPT [Suspect]
     Active Substance: BRINZOLAMIDE
     Indication: Macular degeneration
     Dosage: 5 ML (STARTED MORE THAN A MONTH AGO)
     Route: 065
  2. AZOPT [Suspect]
     Active Substance: BRINZOLAMIDE
     Dosage: 1 DRP, BID (IN EACH EYE)
     Route: 047
     Dates: end: 20221210
  3. LEVOTHYROXINE SODIUM [Concomitant]
     Active Substance: LEVOTHYROXINE SODIUM
     Indication: Thyroidectomy
     Dosage: 1 DOSAGE FORM, QD (ABOUT 10 YEARS AGO)
     Route: 048
  4. VERAPAMIL HYDROCHLORIDE [Concomitant]
     Active Substance: VERAPAMIL HYDROCHLORIDE
     Indication: Hypertension
     Dosage: 1 DOSAGE FORM, QD (MORE THAN 10 YEARS AGO)
     Route: 048
  5. ATORVASTATIN [Concomitant]
     Active Substance: ATORVASTATIN
     Indication: Blood cholesterol
     Dosage: 1 DOSAGE FORM, QD (MORE THAN 10 YEARS AGO)
     Route: 048
  6. RIVOTRIL [Concomitant]
     Active Substance: CLONAZEPAM
     Indication: Agitation
     Dosage: 1 DOSAGE FORM, QD (MORE THAN 10 YEARS AGO)
     Route: 048
  7. CHOLECALCIFEROL [Concomitant]
     Active Substance: CHOLECALCIFEROL
     Indication: Vitamin supplementation
     Dosage: 1 DOSAGE FORM, QD (MORE OR LESS 5 YEARS AGO)
     Route: 048
  8. FOSTER [Concomitant]
     Active Substance: BECLOMETHASONE\FORMOTEROL
     Indication: Bronchitis
     Dosage: UNK, QD (IF NECESSARY, TWICE A DAY) (ABOUT 3 YEARS AGO)
     Route: 048
  9. QUETIAPINE [Concomitant]
     Active Substance: QUETIAPINE
     Indication: Anxiety
     Dosage: 1 DOSAGE FORM, QD (ABOUT 3 YEARS AGO)
     Route: 048

REACTIONS (4)
  - Scratch [Recovering/Resolving]
  - Eye disorder [Recovering/Resolving]
  - Rash [Recovering/Resolving]
  - Dizziness [Recovering/Resolving]

NARRATIVE: CASE EVENT DATE: 20221210
